FAERS Safety Report 9543248 (Version 1)
Quarter: 2013Q3

REPORT INFORMATION
  Report Type: Spontaneous
  Country: NL (occurrence: NL)
  Receive Date: 20130923
  Receipt Date: 20130923
  Transmission Date: 20140515
  Serious: Yes (Hospitalization)
  Sender: FDA-Public Use
  Company Number: NL-IPSEN BIOPHARMACEUTICALS, INC.-2013-4212

PATIENT
  Sex: Female

DRUGS (3)
  1. SOMATULINE AUTOSOLUTION 120MG [Suspect]
     Indication: GASTROINTESTINAL NEOPLASM
     Dosage: 120 MG
     Route: 058
     Dates: start: 20090821, end: 20130815
  2. SOMATULINE AUTOSOLUTION 120MG [Suspect]
     Indication: METASTASES TO LIVER
  3. SOMATULINE AUTOSOLUTION 120MG [Suspect]
     Indication: OFF LABEL USE

REACTIONS (1)
  - Terminal state [Unknown]
